FAERS Safety Report 4700133-6 (Version None)
Quarter: 2005Q2

REPORT INFORMATION
  Report Type: 
  Country: None (occurrence: None)
  Receive Date: 20050624
  Receipt Date: 20050624
  Transmission Date: 20051028
  Serious: Yes (Hospitalization)
  Sender: FDA-Public Use
  Company Number: None

PATIENT
  Age: 82 Year
  Sex: Male

DRUGS (12)
  1. DULOXETINE    60MG [Suspect]
     Indication: DEPRESSION
     Dosage: 60MG   DAILY   ORAL
     Route: 048
     Dates: start: 20050406, end: 20050518
  2. IRBESARTAN [Suspect]
     Indication: HYPERTENSION
     Dosage: 75MG   DAILY   ORAL
     Route: 048
     Dates: start: 20050406, end: 20050518
  3. RAMIPRIL [Concomitant]
  4. ASPIRIN [Concomitant]
  5. FELODIPINE [Concomitant]
  6. ZOCOR [Concomitant]
  7. HYDROCHLOROTHIAZIDE [Concomitant]
  8. ATENOLOL [Concomitant]
  9. THIAMINE [Concomitant]
  10. TAMSULOSIN [Concomitant]
  11. OSCAL-D [Concomitant]
  12. ALEDRONATE [Concomitant]

REACTIONS (5)
  - ASTHENIA [None]
  - BLOOD PRESSURE ORTHOSTATIC [None]
  - DIARRHOEA [None]
  - DIZZINESS [None]
  - ORAL INTAKE REDUCED [None]
